FAERS Safety Report 9625066 (Version 1)
Quarter: 2013Q4

REPORT INFORMATION
  Report Type: Spontaneous
  Country: US (occurrence: None)
  Receive Date: 20131015
  Receipt Date: 20131015
  Transmission Date: 20140711
  Serious: Yes (Other)
  Sender: FDA-Public Use
  Company Number: None

PATIENT
  Age: 34 Year
  Sex: Male
  Weight: 70.31 kg

DRUGS (4)
  1. CLONAZEPAM [Suspect]
     Indication: ANXIETY
     Dosage: 1 MG 56 TAB, TWICE DAILY, TAKEN BY MOUTH
     Route: 048
     Dates: start: 20120801, end: 20131011
  2. INVEGA SUSTENNA [Suspect]
     Dosage: 1 SHOT INTRA MUSCULAR, INTO THE MUSCLE
     Dates: start: 20120801, end: 20130807
  3. SEROQUEL [Concomitant]
  4. FISH OIL [Concomitant]

REACTIONS (4)
  - Medication error [None]
  - Anorectal discomfort [None]
  - Joint dislocation [None]
  - Incorrect drug administration duration [None]
